FAERS Safety Report 24002565 (Version 1)
Quarter: 2024Q2

REPORT INFORMATION
  Report Type: Spontaneous
  Country: PL (occurrence: PL)
  Receive Date: 20240623
  Receipt Date: 20240623
  Transmission Date: 20240716
  Serious: Yes (Hospitalization)
  Sender: FDA-Public Use
  Company Number: PL-BAYER-2024A088628

PATIENT
  Age: 71 Year
  Sex: Male

DRUGS (2)
  1. RIVAROXABAN [Suspect]
     Active Substance: RIVAROXABAN
     Indication: Product used for unknown indication
     Dosage: XARELTO 20 MG,?20 MG
     Route: 048
     Dates: start: 2016, end: 2023
  2. RIVAROXABAN [Suspect]
     Active Substance: RIVAROXABAN
     Dosage: XARELTO 15 MG,?15 MG
     Route: 048
     Dates: start: 2023

REACTIONS (3)
  - Infection [Unknown]
  - Iron deficiency [Unknown]
  - Anaemia [Unknown]

NARRATIVE: CASE EVENT DATE: 20210101
